FAERS Safety Report 7087729-4 (Version None)
Quarter: 2010Q4

REPORT INFORMATION
  Report Type: 
  Country: None (occurrence: None)
  Receive Date: 20101108
  Receipt Date: 20101102
  Transmission Date: 20110411
  Serious: No
  Sender: FDA-Public Use
  Company Number: US-BIOGENIDEC-2010BI038142

PATIENT
  Sex: Female

DRUGS (1)
  1. AVONEX [Suspect]
     Indication: MULTIPLE SCLEROSIS
     Route: 030
     Dates: start: 20100702

REACTIONS (6)
  - ANXIETY [None]
  - CHILLS [None]
  - COLD SWEAT [None]
  - FEELING HOT [None]
  - TREMOR [None]
  - VISUAL IMPAIRMENT [None]
